FAERS Safety Report 9404336 (Version 1)
Quarter: 2013Q3

REPORT INFORMATION
  Report Type: Spontaneous
  Country: US (occurrence: None)
  Receive Date: 20130711
  Receipt Date: 20130711
  Transmission Date: 20140515
  Serious: Yes (Life-Threatening, Hospitalization, Disabling)
  Sender: FDA-Public Use
  Company Number: UTC-033218

PATIENT
  Age: 51 Year
  Sex: Female
  Weight: 106.4 kg

DRUGS (4)
  1. REMODULIN (10 MILLIGRAM/MILLILITERS, INJECTION FOR INFUSION) (TREPROSTINIL SODIUM) [Suspect]
     Indication: PULMONARY ARTERIAL HYPERTENSION
     Dosage: 67.68 UG/KG (0.047 UG/KG, 1 IN 1 MIN(, SUBCUTANEOUS?
     Route: 058
     Dates: start: 20121203
  2. WARFARIN (UNKNOWN) [Concomitant]
  3. ADCIRCA (TADALAFIL) (UNKNOWN) [Concomitant]
  4. LETAIRIS (AMBRISENTAN) (UNKNOWN) [Concomitant]

REACTIONS (2)
  - Haemorrhagic stroke [None]
  - Brain operation [None]
